FAERS Safety Report 4505076-9 (Version None)
Quarter: 2004Q4

REPORT INFORMATION
  Report Type: 
  Country: None (occurrence: None)
  Receive Date: 20041117
  Receipt Date: 20041117
  Transmission Date: 20050328
  Serious: Yes (Hospitalization)
  Sender: FDA-Public Use
  Company Number: None

PATIENT
  Age: 57 Year
  Sex: Male

DRUGS (6)
  1. WARFARIN [Suspect]
     Indication: ATRIAL FIBRILLATION
     Dosage: 5 MG QD
     Dates: start: 20040805
  2. AMIODARONE HCL [Suspect]
     Indication: ATRIAL FIBRILLATION
     Dosage: 200 MG QD
     Dates: start: 20040805
  3. LORTAB [Concomitant]
  4. OMEPRAZOLE [Concomitant]
  5. IRBESARTAN [Concomitant]
  6. PLAVIX [Concomitant]

REACTIONS (1)
  - HAEMATOCHEZIA [None]
